FAERS Safety Report 9440823 (Version 2)
Quarter: 2014Q1

REPORT INFORMATION
  Report Type: Spontaneous
  Country: DK (occurrence: DK)
  Receive Date: 20130805
  Receipt Date: 20140207
  Transmission Date: 20141002
  Serious: Yes (Other)
  Sender: FDA-Public Use
  Company Number: DK-ASTRAZENECA-2013SE59383

PATIENT
  Age: 34 Year
  Sex: Female
  Weight: 65 kg

DRUGS (21)
  1. PROPOFOL [Suspect]
     Indication: ANAESTHESIA
     Dosage: CONTINUOUS INFUSIONS OF PROPOFOL 0.09 MG/ KG/ MIN
     Route: 042
     Dates: start: 201004
  2. PROPOFOL [Interacting]
     Indication: BREAST OPERATION
     Dosage: CONTINUOUS INFUSIONS OF PROPOFOL 0.09 MG/ KG/ MIN
     Route: 042
     Dates: start: 201004
  3. PROPOFOL [Interacting]
     Indication: ANAESTHESIA
     Route: 042
  4. PROPOFOL [Interacting]
     Indication: BREAST OPERATION
     Route: 042
  5. PROPOFOL [Interacting]
     Indication: ANAESTHESIA
     Route: 042
  6. PROPOFOL [Interacting]
     Indication: BREAST OPERATION
     Route: 042
  7. PROPOFOL [Interacting]
     Indication: ANAESTHESIA
     Route: 042
  8. PROPOFOL [Interacting]
     Indication: BREAST OPERATION
     Route: 042
  9. PROPOFOL [Interacting]
     Indication: ANAESTHESIA
     Dosage: 0.1 MG/ KG/ MIN PLUS BOLUSES OF 100 MG
     Route: 042
  10. PROPOFOL [Interacting]
     Indication: BREAST OPERATION
     Dosage: 0.1 MG/ KG/ MIN PLUS BOLUSES OF 100 MG
     Route: 042
  11. REMIFENTANIL [Interacting]
     Indication: ANAESTHESIA
     Dosage: 0.5 MG /KG/MIN PLUS BOLUSES OF 180, 180 AND 300 MG
     Route: 042
     Dates: start: 201004
  12. REMIFENTANIL [Interacting]
     Indication: BREAST OPERATION
     Dosage: 0.5 MG /KG/MIN PLUS BOLUSES OF 180, 180 AND 300 MG
     Route: 042
     Dates: start: 201004
  13. REMIFENTANIL [Interacting]
     Indication: ANAESTHESIA
     Dosage: 240 MG, THEN 0.6 MG/ KG/ MIN, THEN 240 MG BOLUS
     Route: 042
  14. REMIFENTANIL [Interacting]
     Indication: BREAST OPERATION
     Dosage: 240 MG, THEN 0.6 MG/ KG/ MIN, THEN 240 MG BOLUS
     Route: 042
  15. REMIFENTANIL [Interacting]
     Indication: ANAESTHESIA
     Dosage: 0.6 MG TO 1.2 MG/ KG/ MIN PLUS 240 MG BOLUS
     Route: 042
  16. REMIFENTANIL [Interacting]
     Indication: BREAST OPERATION
     Dosage: 0.6 MG TO 1.2 MG/ KG/ MIN PLUS 240 MG BOLUS
     Route: 042
  17. REMIFENTANIL [Interacting]
     Indication: ANAESTHESIA
     Dosage: TOTAL DOSE OF 1718 MG ON 18 MINS AND 24 SECONDS
     Route: 042
     Dates: start: 201006
  18. REMIFENTANIL [Interacting]
     Indication: BREAST OPERATION
     Dosage: TOTAL DOSE OF 1718 MG ON 18 MINS AND 24 SECONDS
     Route: 042
     Dates: start: 201006
  19. THIOPENTAL [Concomitant]
     Route: 042
  20. SUCCINYLCHOLINE CHLORIDE [Concomitant]
  21. SUFENTANIL [Concomitant]

REACTIONS (3)
  - Drug interaction [Unknown]
  - Drug ineffective [Recovered/Resolved]
  - Drug administration error [Unknown]
